FAERS Safety Report 4953468-6 (Version None)
Quarter: 2006Q1

REPORT INFORMATION
  Report Type: 
  Country: None (occurrence: None)
  Receive Date: 20060127
  Receipt Date: 20051014
  Transmission Date: 20060701
  Serious: Yes (Hospitalization)
  Sender: FDA-Public Use
  Company Number: 2005-US-00885

PATIENT
  Age: 48 Year
  Sex: Male

DRUGS (2)
  1. CLOZAPINE [Suspect]
     Indication: ANXIETY
     Dosage: 600 MG QD, ORAL
     Route: 048
     Dates: start: 20041101
  2. CLOZAPINE [Suspect]
     Indication: SCHIZOPHRENIA, PARANOID TYPE
     Dosage: 600 MG QD, ORAL
     Route: 048
     Dates: start: 20041101

REACTIONS (1)
  - DEPRESSION [None]
